FAERS Safety Report 7145867-1 (Version None)
Quarter: 2010Q4

REPORT INFORMATION
  Report Type: 
  Country: None (occurrence: None)
  Receive Date: 20101208
  Receipt Date: 20101202
  Transmission Date: 20110411
  Serious: Yes (Life-Threatening)
  Sender: FDA-Public Use
  Company Number: B0686987A

PATIENT
  Age: 14 Year
  Sex: Male
  Weight: 44 kg

DRUGS (9)
  1. CEFTAZIDIME [Suspect]
     Indication: PSEUDOMONAS INFECTION
     Route: 042
     Dates: start: 20101117, end: 20101117
  2. PULMOZYME [Concomitant]
     Route: 055
     Dates: start: 20100528
  3. COLOMYCIN [Concomitant]
     Indication: PSEUDOMONAS INFECTION
     Route: 055
     Dates: start: 20100205
  4. AZITHROMYCIN [Concomitant]
     Indication: PROPHYLAXIS
     Route: 048
     Dates: start: 20090731
  5. CREON [Concomitant]
     Indication: PANCREATIC INSUFFICIENCY
     Route: 048
     Dates: start: 19960111
  6. VITAMIN A [Concomitant]
     Indication: PANCREATIC INSUFFICIENCY
     Route: 048
     Dates: start: 19960111
  7. VITAMIN D [Concomitant]
     Indication: PANCREATIC INSUFFICIENCY
     Route: 048
     Dates: start: 19960111
  8. VITAMIN E [Concomitant]
     Indication: PANCREATIC INSUFFICIENCY
     Route: 048
     Dates: start: 19960111
  9. SALBUTAMOL [Concomitant]
     Route: 055
     Dates: start: 20070824

REACTIONS (4)
  - EYE SWELLING [None]
  - THROAT IRRITATION [None]
  - URTICARIA [None]
  - WHEEZING [None]
